FAERS Safety Report 4636222-4 (Version None)
Quarter: 2005Q2

REPORT INFORMATION
  Report Type: 
  Country: None (occurrence: None)
  Receive Date: 20050415
  Receipt Date: 20050328
  Transmission Date: 20051028
  Serious: Yes (Other)
  Sender: FDA-Public Use
  Company Number: PHEH2005US03686

PATIENT
  Age: 84 Year
  Sex: Male

DRUGS (5)
  1. TEGRETOL [Suspect]
     Indication: CONVULSION
     Route: 048
  2. LUPRON [Suspect]
     Indication: PROSTATE CANCER METASTATIC
     Dosage: 30 MG QMO X 4
     Route: 030
     Dates: start: 20041101
  3. INSULIN [Concomitant]
     Indication: DIABETES MELLITUS
     Dosage: UNK, UNK
     Route: 058
  4. LASIX [Concomitant]
     Route: 048
  5. TENORMIN [Concomitant]
     Route: 048

REACTIONS (8)
  - BACK PAIN [None]
  - COMPUTERISED TOMOGRAM ABNORMAL [None]
  - DYSPHAGIA [None]
  - GRAND MAL CONVULSION [None]
  - TESTICULAR PAIN [None]
  - TESTICULAR SWELLING [None]
  - TRANSIENT ISCHAEMIC ATTACK [None]
  - TREMOR [None]
